FAERS Safety Report 8957199 (Version 2)
Quarter: 2013Q1

REPORT INFORMATION
  Report Type: Report from Study
  Country: US (occurrence: US)
  Receive Date: 20121210
  Receipt Date: 20130329
  Transmission Date: 20140127
  Serious: Yes (Other)
  Sender: FDA-Public Use
  Company Number: US-ROCHE-1158734

PATIENT
  Sex: 0

DRUGS (1)
  1. BEVACIZUMAB [Suspect]
     Indication: HEPATIC CANCER
     Route: 042

REACTIONS (33)
  - Leukopenia [Unknown]
  - Fatigue [Unknown]
  - Hyponatraemia [Unknown]
  - Anaemia [Unknown]
  - Lymphopenia [Unknown]
  - Cardiac failure [Unknown]
  - Oedema [Unknown]
  - Ischaemia [Unknown]
  - Ascites [Unknown]
  - Nausea [Unknown]
  - Vomiting [Unknown]
  - Oesophageal varices haemorrhage [Unknown]
  - Alanine aminotransferase increased [Unknown]
  - Aspartate aminotransferase increased [Unknown]
  - Hyperbilirubinaemia [Unknown]
  - Hepatic failure [Unknown]
  - Cellulitis [Unknown]
  - Cholangitis [Unknown]
  - Hyperglycaemia [Unknown]
  - Hypocalcaemia [Unknown]
  - Hypokalaemia [Unknown]
  - Fracture [Unknown]
  - Spinal cord compression [Unknown]
  - Delirium [Unknown]
  - Encephalopathy [Unknown]
  - Psychotic disorder [Unknown]
  - Cerebrovascular accident [Unknown]
  - Abdominal pain [Unknown]
  - Abdominal pain upper [Unknown]
  - Chest pain [Unknown]
  - Dyspnoea [Unknown]
  - Renal failure acute [Unknown]
  - Proteinuria [Unknown]
